FAERS Safety Report 10301067 (Version 2)
Quarter: 2014Q3

REPORT INFORMATION
  Report Type: Spontaneous
  Country: US (occurrence: US)
  Receive Date: 20140714
  Receipt Date: 20140807
  Transmission Date: 20150326
  Serious: Yes (Death, Hospitalization)
  Sender: FDA-Public Use
  Company Number: US-ACTELION-A-US2014-101700

PATIENT
  Age: 67 Year
  Sex: Female

DRUGS (3)
  1. SILDENAFIL [Concomitant]
     Active Substance: SILDENAFIL
  2. REMODULIN [Concomitant]
     Active Substance: TREPROSTINIL
  3. TRACLEER [Suspect]
     Active Substance: BOSENTAN\BOSENTAN MONOHYDRATE
     Indication: PULMONARY ARTERIAL HYPERTENSION
     Dosage: UNK
     Route: 048
     Dates: end: 20140629

REACTIONS (6)
  - Fluid overload [Unknown]
  - Pulmonary arterial hypertension [Fatal]
  - Cardiac failure congestive [Fatal]
  - Cardiomegaly [Fatal]
  - Disease progression [Fatal]
  - Hypoxia [Fatal]
